FAERS Safety Report 8833367 (Version 6)
Quarter: 2016Q3

REPORT INFORMATION
  Report Type: Spontaneous
  Country: US (occurrence: US)
  Receive Date: 20121010
  Receipt Date: 20160927
  Transmission Date: 20161109
  Serious: Yes (Hospitalization, Disabling, Other)
  Sender: FDA-Public Use
  Company Number: US-009507513-1210USA002673

PATIENT
  Sex: Female

DRUGS (9)
  1. ALENDRONATE SODIUM. [Suspect]
     Active Substance: ALENDRONATE SODIUM
     Indication: OSTEOPOROSIS
  2. FOSAMAX [Suspect]
     Active Substance: ALENDRONATE SODIUM
     Indication: OSTEOPENIA
     Dosage: 10 MG, QD
     Route: 048
     Dates: start: 2000, end: 201006
  3. FOSAMAX PLUS D [Suspect]
     Active Substance: ALENDRONATE SODIUM\CHOLECALCIFEROL
     Indication: OSTEOPOROSIS
  4. ALENDRONATE SODIUM. [Suspect]
     Active Substance: ALENDRONATE SODIUM
     Indication: OSTEOPOROSIS
  5. ALENDRONATE SODIUM. [Suspect]
     Active Substance: ALENDRONATE SODIUM
     Indication: OSTEOPENIA
     Dosage: UNK, UNKNOWN
     Route: 048
     Dates: start: 2000, end: 201006
  6. ALENDRONATE SODIUM. [Suspect]
     Active Substance: ALENDRONATE SODIUM
     Indication: OSTEOPENIA
     Dosage: 70 MG, QW
     Route: 048
     Dates: start: 201001, end: 201006
  7. CALCIUM (UNSPECIFIED) [Concomitant]
     Active Substance: CALCIUM
     Indication: PRODUCT USED FOR UNKNOWN INDICATION
     Dosage: 500 MG, QD
     Route: 065
     Dates: start: 1997
  8. FOSAMAX PLUS D [Suspect]
     Active Substance: ALENDRONATE SODIUM\CHOLECALCIFEROL
     Indication: OSTEOPENIA
     Dosage: UNK UNK, UNKNOWN
     Route: 048
     Dates: start: 2000, end: 201006
  9. FOSAMAX [Suspect]
     Active Substance: ALENDRONATE SODIUM
     Indication: OSTEOPOROSIS

REACTIONS (56)
  - Closed fracture manipulation [Unknown]
  - Uterine aplasia [Unknown]
  - Panic disorder [Unknown]
  - Intervertebral disc protrusion [Unknown]
  - Foot fracture [Unknown]
  - Femur fracture [Unknown]
  - Macular degeneration [Unknown]
  - Spider vein [Unknown]
  - Seborrhoeic keratosis [Unknown]
  - Drug intolerance [Unknown]
  - Pain in extremity [Not Recovered/Not Resolved]
  - Haemorrhagic anaemia [Recovering/Resolving]
  - Fall [Unknown]
  - Bursitis [Unknown]
  - Neuralgia [Unknown]
  - Bone disorder [Unknown]
  - Fibromyalgia [Not Recovered/Not Resolved]
  - Nerve compression [Unknown]
  - Myalgia [Unknown]
  - Vertigo [Unknown]
  - Femur fracture [Recovered/Resolved]
  - Deafness [Unknown]
  - Biopsy thyroid gland [Unknown]
  - Hypertension [Unknown]
  - Uterine leiomyoma [Unknown]
  - Exostosis [Unknown]
  - Osteoarthritis [Unknown]
  - Nocturia [Unknown]
  - Sunburn [Unknown]
  - Fracture nonunion [Unknown]
  - Bladder disorder [Unknown]
  - Thyroid disorder [Unknown]
  - Temporomandibular joint syndrome [Unknown]
  - Osteoarthritis [Unknown]
  - Neuroma [Unknown]
  - Skin lesion [Unknown]
  - Contusion [Unknown]
  - Muscle spasms [Unknown]
  - Back pain [Unknown]
  - Arthralgia [Not Recovered/Not Resolved]
  - Goitre [Unknown]
  - Cataract [Unknown]
  - Duane^s syndrome [Unknown]
  - Anaemia [Unknown]
  - Burning sensation [Unknown]
  - Insomnia [Unknown]
  - Hot flush [Unknown]
  - Hyperhidrosis [Unknown]
  - Intervertebral disc degeneration [Unknown]
  - Gastrooesophageal reflux disease [Unknown]
  - Transfusion [Recovering/Resolving]
  - Myositis [Unknown]
  - Urinary tract infection [Unknown]
  - Haematoma [Unknown]
  - Dizziness [Unknown]
  - Neck pain [Unknown]

NARRATIVE: CASE EVENT DATE: 20010110
